FAERS Safety Report 7556270-4 (Version None)
Quarter: 2011Q2

REPORT INFORMATION
  Report Type: 
  Country: None (occurrence: None)
  Receive Date: 20110620
  Receipt Date: 20110613
  Transmission Date: 20111010
  Serious: Yes (Death)
  Sender: FDA-Public Use
  Company Number: US-ELI_LILLY_AND_COMPANY-US201106003481

PATIENT
  Sex: Male

DRUGS (3)
  1. BYETTA [Suspect]
     Route: 058
  2. NOVOLOG [Concomitant]
  3. HUMALOG [Concomitant]

REACTIONS (2)
  - OFF LABEL USE [None]
  - DEATH [None]
